FAERS Safety Report 7009203-3 (Version None)
Quarter: 2010Q3

REPORT INFORMATION
  Report Type: 
  Country: None (occurrence: None)
  Receive Date: 20100923
  Receipt Date: 20100921
  Transmission Date: 20110219
  Serious: Yes (Congenital Anomaly, Other)
  Sender: FDA-Public Use
  Company Number: IL-JNJFOC-20100706561

PATIENT

DRUGS (2)
  1. HALOPERIDOL [Suspect]
     Indication: DRUG EXPOSURE DURING PREGNANCY
     Dosage: EVERY 4 WEEK
     Route: 064
  2. UNKNOWN MEDICATION [Concomitant]

REACTIONS (1)
  - CONGENITAL ANOMALY [None]
